FAERS Safety Report 9642992 (Version 2)
Quarter: 2014Q1

REPORT INFORMATION
  Report Type: Spontaneous
  Country: IE (occurrence: IE)
  Receive Date: 20131024
  Receipt Date: 20140131
  Transmission Date: 20141002
  Serious: Yes (Death)
  Sender: FDA-Public Use
  Company Number: IE-JNJFOC-20131009743

PATIENT
  Sex: Male

DRUGS (1)
  1. DUROGESIC [Suspect]
     Indication: PAIN
     Route: 062

REACTIONS (2)
  - Hypovolaemia [Fatal]
  - Off label use [Unknown]
